FAERS Safety Report 8152297-2 (Version None)
Quarter: 2012Q1

REPORT INFORMATION
  Report Type: 
  Country: None (occurrence: None)
  Receive Date: 20120215
  Receipt Date: 20120215
  Transmission Date: 20120608
  Serious: Yes (Other)
  Sender: FDA-Public Use
  Company Number: None

PATIENT
  Age: 54 Year
  Sex: Male
  Weight: 142.7 kg

DRUGS (2)
  1. TAZORAC [Suspect]
     Indication: BASAL CELL NAEVUS SYNDROME
     Dosage: 0.1% DAILY TOPICAL
     Route: 061
     Dates: start: 20090815
  2. NEURONTIN [Concomitant]

REACTIONS (1)
  - PROSTATE CANCER [None]
